FAERS Safety Report 4541041-3 (Version None)
Quarter: 2004Q4

REPORT INFORMATION
  Report Type: 
  Country: None (occurrence: None)
  Receive Date: 20041228
  Receipt Date: 20041222
  Transmission Date: 20050328
  Serious: Yes (Hospitalization)
  Sender: FDA-Public Use
  Company Number: 200413446GDS

PATIENT
  Age: 65 Year
  Sex: Male

DRUGS (2)
  1. ASPIRIN [Suspect]
     Dosage: 100 MG, TOTAL DAILY, ORAL
     Route: 048
     Dates: end: 20041130
  2. ACENOCOUMAROL [Suspect]
     Dosage: PRN, ORAL
     Route: 048
     Dates: end: 20041130

REACTIONS (1)
  - CEREBRAL HAEMORRHAGE [None]
